FAERS Safety Report 4266202-2 (Version None)
Quarter: 2004Q1

REPORT INFORMATION
  Report Type: 
  Country: None (occurrence: None)
  Receive Date: 20040106
  Receipt Date: 20031222
  Transmission Date: 20041129
  Serious: Yes (Death)
  Sender: FDA-Public Use
  Company Number: 2003GB03392

PATIENT
  Age: 44 Year
  Sex: Male

DRUGS (6)
  1. CRESTOR [Suspect]
     Indication: HYPERCHOLESTEROLAEMIA
     Dosage: 10 MG , PO
     Route: 048
     Dates: start: 20031204
  2. AMOXICILLIN [Concomitant]
  3. SALBUTAMOL [Concomitant]
  4. PERINDOPRIL [Concomitant]
  5. SERETIDE DISKUS [Concomitant]
  6. ASPIRIN [Concomitant]

REACTIONS (1)
  - CONVULSION [None]
